FAERS Safety Report 8412402-7 (Version None)
Quarter: 2012Q2

REPORT INFORMATION
  Report Type: 
  Country: None (occurrence: None)
  Receive Date: 20120605
  Receipt Date: 20120523
  Transmission Date: 20120825
  Serious: Yes (Other)
  Sender: FDA-Public Use
  Company Number: GR-ELI_LILLY_AND_COMPANY-GR201205008471

PATIENT
  Age: 90 Year
  Sex: Female

DRUGS (2)
  1. CYMBALTA [Suspect]
     Dosage: 30 MG, UNKNOWN
     Route: 048
  2. CYMBALTA [Suspect]
     Indication: BACK PAIN
     Dosage: 60 MG, UNKNOWN
     Route: 048
     Dates: start: 20120504

REACTIONS (2)
  - RASH [None]
  - CHEST PAIN [None]
